FAERS Safety Report 10080116 (Version 2)
Quarter: 2014Q2

REPORT INFORMATION
  Report Type: Spontaneous
  Country: DK (occurrence: DE)
  Receive Date: 20140415
  Receipt Date: 20140528
  Transmission Date: 20141212
  Serious: Yes (Other)
  Sender: FDA-Public Use
  Company Number: DE-FRI-1000066528

PATIENT
  Age: 22 Year
  Sex: Female

DRUGS (3)
  1. CITALOPRAM [Suspect]
     Dosage: 40 MG
     Route: 048
  2. KEPPRA [Suspect]
     Dosage: 1000 MG
     Route: 048
  3. L-THYROXIN [Concomitant]
     Dosage: 87.5 MICROGRAMS
     Route: 048

REACTIONS (3)
  - Premature rupture of membranes [Unknown]
  - Streptococcal infection [Unknown]
  - Pregnancy [Unknown]
